FAERS Safety Report 13711014 (Version 1)
Quarter: 2017Q2

REPORT INFORMATION
  Report Type: Spontaneous
  Country: US (occurrence: US)
  Receive Date: 20170630
  Receipt Date: 20170630
  Transmission Date: 20170830
  Serious: Yes (Hospitalization)
  Sender: FDA-Public Use
  Company Number: None

PATIENT
  Age: 67 Year
  Sex: Male
  Weight: 41.3 kg

DRUGS (1)
  1. TRAMADOL. [Suspect]
     Active Substance: TRAMADOL
     Indication: PAIN
     Route: 048
     Dates: start: 20160506, end: 20160602

REACTIONS (6)
  - Acute kidney injury [None]
  - Fall [None]
  - Mental status changes [None]
  - Unresponsive to stimuli [None]
  - Hypotension [None]
  - Metabolic acidosis [None]

NARRATIVE: CASE EVENT DATE: 20160715
